FAERS Safety Report 8428244-2 (Version None)
Quarter: 2012Q2

REPORT INFORMATION
  Report Type: 
  Country: None (occurrence: None)
  Receive Date: 20120611
  Receipt Date: 20111103
  Transmission Date: 20120825
  Serious: No
  Sender: FDA-Public Use
  Company Number: US-ASTRAZENECA-2011SE66493

PATIENT
  Age: 81 Year
  Sex: Female
  Weight: 72.6 kg

DRUGS (7)
  1. PULMICORT [Suspect]
     Indication: NASOPHARYNGITIS
     Dosage: DAILY
     Route: 055
  2. PULMICORT [Suspect]
     Indication: ASTHMA
     Dosage: DAILY
     Route: 055
  3. PULMICORT [Suspect]
     Route: 055
  4. PULMICORT [Suspect]
     Route: 055
  5. PULMICORT [Suspect]
     Route: 055
  6. PULMICORT [Suspect]
     Indication: BRONCHITIS
     Dosage: DAILY
     Route: 055
  7. ACETAMINOPHEN [Concomitant]

REACTIONS (2)
  - COUGH [None]
  - OFF LABEL USE [None]
